FAERS Safety Report 6960366-5 (Version None)
Quarter: 2010Q3

REPORT INFORMATION
  Report Type: 
  Country: None (occurrence: None)
  Receive Date: 20100823
  Receipt Date: 20100623
  Transmission Date: 20110219
  Serious: No
  Sender: FDA-Public Use
  Company Number: 014772

PATIENT
  Sex: Female
  Weight: 54 kg

DRUGS (3)
  1. CIMZIA [Suspect]
     Indication: RHEUMATOID ARTHRITIS
     Dosage: 200 MG 1X/2 WEEKS SUBCUTANEOUS
     Route: 058
     Dates: start: 20100501
  2. VICODIN [Concomitant]
  3. TYLENOL-500 [Concomitant]

REACTIONS (9)
  - DIPLOPIA [None]
  - DRUG INEFFECTIVE [None]
  - FEELING HOT [None]
  - NASAL DRYNESS [None]
  - PRURITUS [None]
  - RHINORRHOEA [None]
  - UPPER-AIRWAY COUGH SYNDROME [None]
  - URTICARIA [None]
  - VISION BLURRED [None]
